FAERS Safety Report 4580177-8 (Version None)
Quarter: 2005Q1

REPORT INFORMATION
  Report Type: 
  Country: None (occurrence: None)
  Receive Date: 20050214
  Receipt Date: 20050209
  Transmission Date: 20050727
  Serious: Yes (Hospitalization, Other)
  Sender: FDA-Public Use
  Company Number: US-BRISTOL-MYERS SQUIBB COMPANY-12855433

PATIENT
  Age: 54 Year
  Sex: Female
  Weight: 79 kg

DRUGS (1)
  1. ERBITUX [Suspect]
     Indication: COLON CANCER
     Dosage: 200 MG/M2 (380 MG). REC'D FROM 04-NOV TO 15-DEC-2004 (5 DOSES). PRODUCT STRENGTH 50 ML/100 MG
     Route: 042
     Dates: start: 20041104

REACTIONS (3)
  - DERMATITIS ACNEIFORM [None]
  - PNEUMONIA [None]
  - STOMATITIS [None]
